FAERS Safety Report 16413269 (Version 1)
Quarter: 2019Q2

REPORT INFORMATION
  Report Type: Spontaneous
  Country: US (occurrence: US)
  Receive Date: 20190503
  Receipt Date: 20190503
  Transmission Date: 20190711
  Serious: Yes (Hospitalization)
  Sender: FDA-Public Use
  Company Number: None

PATIENT
  Age: 55 Year
  Sex: Male

DRUGS (8)
  1. SILDENAFIL. [Suspect]
     Active Substance: SILDENAFIL
     Indication: PULMONARY ARTERIAL HYPERTENSION
     Route: 048
  2. METOPROLOL. [Concomitant]
     Active Substance: METOPROLOL
  3. XARELTO [Concomitant]
     Active Substance: RIVAROXABAN
  4. BUMETANIDE. [Concomitant]
     Active Substance: BUMETANIDE
  5. POT CL MICRO [Concomitant]
  6. SPIRONOLACT [Concomitant]
     Active Substance: SPIRONOLACTONE
  7. AMIODARONE [Concomitant]
     Active Substance: AMIODARONE
  8. DIGOX [Concomitant]
     Active Substance: DIGOXIN

REACTIONS (1)
  - Cardiac failure congestive [None]

NARRATIVE: CASE EVENT DATE: 20190412
